FAERS Safety Report 10092188 (Version 1)
Quarter: 2014Q2

REPORT INFORMATION
  Report Type: Spontaneous
  Country: US (occurrence: US)
  Receive Date: 20140421
  Receipt Date: 20140421
  Transmission Date: 20141212
  Serious: No
  Sender: FDA-Public Use
  Company Number: US-SANOFI-AVENTIS-2013SA037564

PATIENT
  Age: 47 Year
  Sex: Female

DRUGS (2)
  1. ALLEGRA 24 HOUR [Suspect]
     Indication: SEASONAL ALLERGY
     Route: 048
     Dates: start: 20130225, end: 20130322
  2. ALLEGRA 24 HOUR [Suspect]
     Indication: SEASONAL ALLERGY
     Route: 048
     Dates: start: 20130326

REACTIONS (3)
  - Seasonal allergy [Not Recovered/Not Resolved]
  - Nasal congestion [Not Recovered/Not Resolved]
  - Lacrimation increased [Not Recovered/Not Resolved]
